FAERS Safety Report 12678804 (Version 3)
Quarter: 2017Q1

REPORT INFORMATION
  Report Type: Spontaneous
  Country: IN (occurrence: IN)
  Receive Date: 20160824
  Receipt Date: 20170131
  Transmission Date: 20170428
  Serious: Yes (Disabling, Other)
  Sender: FDA-Public Use
  Company Number: IN-CIPLA LTD.-2016IN17573

PATIENT

DRUGS (4)
  1. TELVAS [Concomitant]
     Indication: HYPERTENSION
     Dosage: 40 MG, QD, AFTER BREAKFAST
     Route: 065
  2. OKACET [Suspect]
     Active Substance: CETIRIZINE HYDROCHLORIDE
     Indication: HYPERSENSITIVITY
     Dosage: 10 MG, 1 TABLET IN MORNING
     Route: 065
  3. GLUCONORM-SR [Concomitant]
     Indication: DIABETES MELLITUS
     Dosage: 1 G, QD, AFTER DINNER
     Route: 048
  4. A TO Z [Concomitant]
     Dosage: UNK, QD, AFTER BREAKFAST
     Route: 065

REACTIONS (3)
  - Blood homocysteine increased [Unknown]
  - Visual acuity reduced [Unknown]
  - Glaucoma [Unknown]

NARRATIVE: CASE EVENT DATE: 20160817
